FAERS Safety Report 4696281-X (Version None)
Quarter: 2005Q2

REPORT INFORMATION
  Report Type: 
  Country: None (occurrence: None)
  Receive Date: 20050620
  Receipt Date: 20050614
  Transmission Date: 20051028
  Serious: Yes (Other)
  Sender: FDA-Public Use
  Company Number: 2003-10-2304

PATIENT
  Age: 49 Year
  Sex: Male
  Weight: 69.8539 kg

DRUGS (9)
  1. PEG-INTRON [Suspect]
     Indication: HEPATITIS C
     Dosage: 0.5 CC-*QW SUBCUTANEOUS
     Route: 058
     Dates: start: 20031103, end: 20041017
  2. PEG-INTRON [Suspect]
     Indication: HEPATITIS C
     Dosage: 0.5 CC-*QW SUBCUTANEOUS
     Route: 058
     Dates: start: 20021001
  3. ............... [Concomitant]
  4. REBETOL [Suspect]
     Indication: HEPATITIS C
     Dosage: -200MG*BID ORAL
     Route: 048
     Dates: start: 20021001, end: 20030902
  5. REBETOL [Suspect]
     Indication: HEPATITIS C
     Dosage: -200MG*BID ORAL
     Route: 048
     Dates: start: 20031103, end: 20041017
  6. REBETOL [Suspect]
     Indication: HEPATITIS C
     Dosage: -200MG*BID ORAL
     Route: 048
     Dates: start: 20030908
  7. ......... [Concomitant]
  8. MULTI-VITAMINS [Concomitant]
  9. ENSURE [Concomitant]

REACTIONS (72)
  - ABDOMINAL PAIN UPPER [None]
  - ABNORMAL FAECES [None]
  - ABSCESS [None]
  - ACQUIRED IMMUNODEFICIENCY SYNDROME [None]
  - AMNESIA [None]
  - ANAEMIA [None]
  - ANOREXIA [None]
  - BACK PAIN [None]
  - BODY FAT DISORDER [None]
  - BONE PAIN [None]
  - BOWEL MOVEMENT IRREGULARITY [None]
  - CHROMATURIA [None]
  - COELIAC DISEASE [None]
  - CONFUSIONAL STATE [None]
  - CONSTIPATION [None]
  - COORDINATION ABNORMAL [None]
  - COUGH [None]
  - CROUP INFECTIOUS [None]
  - DEPRESSION [None]
  - DIARRHOEA [None]
  - DIPHTHERIA [None]
  - DIZZINESS [None]
  - EPSTEIN-BARR VIRUS INFECTION [None]
  - EYE IRRITATION [None]
  - EYE PAIN [None]
  - FAECES DISCOLOURED [None]
  - FATIGUE [None]
  - FLAT FEET [None]
  - FRACTURE [None]
  - GASTROINTESTINAL PAIN [None]
  - GUILLAIN-BARRE SYNDROME [None]
  - HAEMOPTYSIS [None]
  - HALITOSIS [None]
  - HALO VISION [None]
  - HEADACHE [None]
  - HYPOAESTHESIA [None]
  - HYPOVITAMINOSIS [None]
  - INFLUENZA LIKE ILLNESS [None]
  - INSOMNIA [None]
  - IRRITABILITY [None]
  - LOSS OF CONSCIOUSNESS [None]
  - LYMPHADENOPATHY [None]
  - MEMORY IMPAIRMENT [None]
  - MUSCLE SPASMS [None]
  - MYALGIA [None]
  - NAUSEA [None]
  - NEUROPATHY PERIPHERAL [None]
  - NUCHAL RIGIDITY [None]
  - OVERDOSE [None]
  - PAIN [None]
  - PALPITATIONS [None]
  - PARAESTHESIA [None]
  - PHARYNGOLARYNGEAL PAIN [None]
  - PHOTOPHOBIA [None]
  - PIGMENTED NAEVUS [None]
  - PLATELET COUNT DECREASED [None]
  - POLLAKIURIA [None]
  - PRURITUS [None]
  - PSYCHOMOTOR HYPERACTIVITY [None]
  - PULMONARY CONGESTION [None]
  - RASH [None]
  - SINUS DISORDER [None]
  - STEATORRHOEA [None]
  - SUICIDAL IDEATION [None]
  - TONGUE SPASM [None]
  - TOOTHACHE [None]
  - VISION BLURRED [None]
  - VISUAL ACUITY REDUCED [None]
  - VISUAL DISTURBANCE [None]
  - VITAMIN B1 DEFICIENCY [None]
  - VOMITING [None]
  - WEIGHT DECREASED [None]
